FAERS Safety Report 8555264-X (Version None)
Quarter: 2012Q3

REPORT INFORMATION
  Report Type: 
  Country: None (occurrence: None)
  Receive Date: 20120731
  Receipt Date: 20110825
  Transmission Date: 20120928
  Serious: No
  Sender: FDA-Public Use
  Company Number: US-ASTRAZENECA-2011SE51435

PATIENT
  Age: 60 Year
  Sex: Female
  Weight: 59 kg

DRUGS (13)
  1. SEROQUEL [Suspect]
     Indication: SLEEP DISORDER
     Route: 048
     Dates: start: 20010101, end: 20110201
  2. SEROQUEL [Suspect]
     Route: 048
  3. SEROQUEL [Suspect]
     Route: 048
  4. AMETRIPLINE [Concomitant]
  5. SOMA [Concomitant]
     Indication: MUSCLE SPASMS
  6. SEROQUEL [Suspect]
     Indication: ANXIETY
     Route: 048
     Dates: start: 20010101, end: 20110201
  7. FLUTICASONE TROP [Concomitant]
     Indication: ALLERGIC SINUSITIS
  8. OXYCODONE HCL [Concomitant]
     Indication: INTERVERTEBRAL DISC DEGENERATION
  9. CLONAZEPAM [Concomitant]
     Indication: NERVOUS SYSTEM DISORDER
  10. ASPIRIN [Concomitant]
  11. FELODIPINE [Concomitant]
  12. LORATADINE [Concomitant]
     Indication: HYPERSENSITIVITY
  13. CALCITONIN SALMON [Concomitant]
     Indication: BLOOD CALCIUM

REACTIONS (3)
  - INSOMNIA [None]
  - DRUG DOSE OMISSION [None]
  - ABNORMAL DREAMS [None]
